FAERS Safety Report 10541828 (Version 1)
Quarter: 2014Q4

REPORT INFORMATION
  Report Type: Spontaneous
  Country: US (occurrence: US)
  Receive Date: 20141024
  Receipt Date: 20141024
  Transmission Date: 20150529
  Serious: No
  Sender: FDA-Public Use
  Company Number: US-NOVEN-14US009976

PATIENT
  Age: 54 Year
  Sex: Female
  Weight: 103.86 kg

DRUGS (1)
  1. BRISDELLE [Suspect]
     Active Substance: PAROXETINE MESYLATE
     Indication: HOT FLUSH
     Dosage: 7.5 MG, QD
     Route: 048
     Dates: start: 20140606, end: 20140722

REACTIONS (1)
  - Libido decreased [Recovered/Resolved]

NARRATIVE: CASE EVENT DATE: 201407
